FAERS Safety Report 10404431 (Version 1)
Quarter: 2014Q1

REPORT INFORMATION
  Report Type: Spontaneous
  Country: US (occurrence: None)
  Receive Date: 20140214
  Receipt Date: 20140214
  Transmission Date: 20141002
  Serious: No
  Sender: FDA-Public Use
  Company Number: A-NJ2013-92238

PATIENT
  Age: 72 Year
  Sex: Female

DRUGS (2)
  1. OPSUMIT (MACITENTAN) [Suspect]
     Indication: PULMONARY ARTERIAL HYPERTENSION
     Route: 048
     Dates: start: 20131022
  2. WARFARIN (WARFARIN SODIUM) [Concomitant]

REACTIONS (3)
  - Chromaturia [None]
  - Dyspnoea [None]
  - Urinary tract infection [None]
